FAERS Safety Report 18145708 (Version 2)
Quarter: 2021Q1

REPORT INFORMATION
  Report Type: Other
  Country: CA (occurrence: CA)
  Receive Date: 20200813
  Receipt Date: 20210302
  Transmission Date: 20210419
  Serious: Yes (Other)
  Sender: FDA-Public Use
  Company Number: CA-APOTEX-2020AP015629

PATIENT
  Age: 78 Year
  Sex: Female
  Weight: 59 kg

DRUGS (7)
  1. SYNTHROID [Suspect]
     Active Substance: LEVOTHYROXINE SODIUM
     Indication: PRODUCT USED FOR UNKNOWN INDICATION
     Dosage: UNK
     Route: 065
  2. ZOLEDRONIC ACID [Suspect]
     Active Substance: ZOLEDRONIC ACID
     Indication: BONE DENSITY ABNORMAL
     Dosage: 1 DOSAGE FORM, TOTAL
     Route: 042
  3. MACROGOL 3350 [Concomitant]
     Active Substance: POLYETHYLENE GLYCOL 3350
     Indication: PRODUCT USED FOR UNKNOWN INDICATION
     Dosage: UNK
     Route: 065
  4. DICLOFENAC [Concomitant]
     Active Substance: DICLOFENAC
     Indication: PRODUCT USED FOR UNKNOWN INDICATION
     Dosage: UNK
     Route: 065
  5. MINERALS NOS;VITAMINS NOS [Concomitant]
     Active Substance: MINERALS\VITAMINS
     Indication: PRODUCT USED FOR UNKNOWN INDICATION
     Dosage: UNK
     Route: 065
  6. POLYETHYLENE GLYCOL COMPOUND [Concomitant]
     Indication: PRODUCT USED FOR UNKNOWN INDICATION
     Dosage: UNK
     Route: 065
  7. SYNTHROID [Concomitant]
     Active Substance: LEVOTHYROXINE SODIUM
     Indication: PRODUCT USED FOR UNKNOWN INDICATION
     Dosage: UNK
     Route: 065

REACTIONS (16)
  - Condition aggravated [Recovering/Resolving]
  - Fatigue [Recovering/Resolving]
  - Asthenia [Recovering/Resolving]
  - Arthritis [Recovering/Resolving]
  - Tenderness [Recovering/Resolving]
  - Dyspepsia [Recovering/Resolving]
  - Abdominal pain [Recovering/Resolving]
  - Groin pain [Recovering/Resolving]
  - Pain in extremity [Recovering/Resolving]
  - Headache [Recovering/Resolving]
  - Myalgia [Recovering/Resolving]
  - Lethargy [Recovering/Resolving]
  - Arthralgia [Recovering/Resolving]
  - Insomnia [Recovering/Resolving]
  - Nasal congestion [Recovering/Resolving]
  - Bone pain [Recovering/Resolving]
